FAERS Safety Report 9160697 (Version 1)
Quarter: 2013Q1

REPORT INFORMATION
  Report Type: Spontaneous
  Country: US (occurrence: US)
  Receive Date: 20130313
  Receipt Date: 20130313
  Transmission Date: 20140127
  Serious: Yes (Hospitalization, Other)
  Sender: FDA-Public Use
  Company Number: US-ASTRAZENECA-2001UW09193

PATIENT
  Age: 54 Year
  Sex: Male
  Weight: 83.9 kg

DRUGS (6)
  1. NEXIUM [Suspect]
     Indication: BARRETT^S OESOPHAGUS
     Route: 048
     Dates: end: 20130220
  2. NEXIUM [Suspect]
     Indication: METAPLASIA
     Route: 048
     Dates: end: 20130220
  3. NEXIUM [Suspect]
     Indication: BARRETT^S OESOPHAGUS
     Route: 048
     Dates: start: 20130221
  4. NEXIUM [Suspect]
     Indication: METAPLASIA
     Route: 048
     Dates: start: 20130221
  5. PRILOSEC [Suspect]
     Indication: BARRETT^S OESOPHAGUS
     Route: 048
  6. REGLAN [Concomitant]
     Dates: end: 2012

REACTIONS (16)
  - Pancreatitis [Unknown]
  - Full blood count decreased [Unknown]
  - Loss of consciousness [Unknown]
  - Haematemesis [Unknown]
  - Haematochezia [Unknown]
  - Abdominal pain upper [Unknown]
  - Oesophageal stenosis [Unknown]
  - Cardiomegaly [Not Recovered/Not Resolved]
  - Extrasystoles [Not Recovered/Not Resolved]
  - Back disorder [Not Recovered/Not Resolved]
  - Regurgitation [Not Recovered/Not Resolved]
  - Electric shock [Unknown]
  - Oesophageal pain [Unknown]
  - Chest pain [Unknown]
  - Hepatic enzyme increased [Unknown]
  - Off label use [Unknown]
